FAERS Safety Report 8431222-0 (Version None)
Quarter: 2012Q2

REPORT INFORMATION
  Report Type: 
  Country: None (occurrence: None)
  Receive Date: 20120612
  Receipt Date: 20120604
  Transmission Date: 20120825
  Serious: Yes (Hospitalization)
  Sender: FDA-Public Use
  Company Number: US-AMGEN-USASP2012035016

PATIENT
  Age: 50 Year
  Sex: Female

DRUGS (2)
  1. ENBREL [Suspect]
     Indication: PSORIASIS
  2. ENBREL [Suspect]
     Indication: PSORIATIC ARTHROPATHY
     Dosage: 50 MG, QWK
     Dates: start: 20060401

REACTIONS (5)
  - PSORIATIC ARTHROPATHY [None]
  - PSORIASIS [None]
  - CHRONIC OBSTRUCTIVE PULMONARY DISEASE [None]
  - WALKING AID USER [None]
  - CELLULITIS [None]
